FAERS Safety Report 5282468-4 (Version None)
Quarter: 2007Q1

REPORT INFORMATION
  Report Type: 
  Country: None (occurrence: None)
  Receive Date: 20070326
  Receipt Date: 20070316
  Transmission Date: 20070707
  Serious: Yes (Hospitalization)
  Sender: FDA-Public Use
  Company Number: 237239

PATIENT
  Age: 73 Year
  Sex: Female

DRUGS (8)
  1. LUCENTIS [Suspect]
     Indication: MACULAR DEGENERATION
     Dosage: Q6W, INTRAVITREAL
     Dates: start: 20061201
  2. LUCENTIS [Suspect]
  3. ZOLOFT [Concomitant]
  4. WELLBUTRIN [Concomitant]
  5. DIOVAN [Concomitant]
  6. TOPROL-XL [Concomitant]
  7. LIPITOR [Concomitant]
  8. EXCEDRIN (UNITED STATES) (ACETAMINOPHEN, ASPIRIN, CAFFEINE) [Concomitant]

REACTIONS (8)
  - ARTHRITIS [None]
  - BONE PAIN [None]
  - CONDITION AGGRAVATED [None]
  - HEADACHE [None]
  - PAIN [None]
  - PYREXIA [None]
  - UPPER RESPIRATORY TRACT INFECTION [None]
  - WHITE BLOOD CELL COUNT INCREASED [None]
